FAERS Safety Report 9017179 (Version 1)
Quarter: 2013Q1

REPORT INFORMATION
  Report Type: Spontaneous
  Country: US (occurrence: US)
  Receive Date: 20130117
  Receipt Date: 20130117
  Transmission Date: 20140127
  Serious: Yes (Hospitalization, Other)
  Sender: FDA-Public Use
  Company Number: US-BAYER-2013-003886

PATIENT
  Age: 36 Year
  Sex: Female
  Weight: 146.89 kg

DRUGS (34)
  1. YAZ [Suspect]
  2. YASMIN [Suspect]
  3. OCELLA [Suspect]
  4. CYANOCOBALAMIN [Concomitant]
     Dosage: 1000 ?G, ONCE PER MONTH
  5. MULTIVITAMIN [Concomitant]
     Dosage: DAILY
  6. PRENATAL PLUS VITAMIN [Concomitant]
  7. NYSTOP [Concomitant]
     Dosage: AS NEEDED
  8. PROAIR HFA [Concomitant]
     Indication: DYSPNOEA
     Dosage: AS NEEDED
  9. BUSPAR [Concomitant]
     Dosage: 15 MG, BID DAILY
  10. BUSPAR [Concomitant]
     Dosage: 30 MG, BID DAILY
  11. ATIVAN [Concomitant]
     Indication: ANXIETY
     Dosage: 0.5 MG, BID AS NEEDED
  12. PHENERGAN [Concomitant]
     Dosage: 12.5 MG, PRN EVER 6 HOURS
  13. LOMOTIL [ATROPINE SULFATE,DIPHENOXYLATE HYDROCHLORIDE] [Concomitant]
     Indication: DIARRHOEA
     Dosage: 5 MG, PRN
  14. PRECOSE [Concomitant]
     Dosage: 25 MG, TID WITH MEAL
  15. ABILIFY [Concomitant]
     Dosage: 30 MG, DAILY
  16. CYMBALTA [Concomitant]
     Dosage: 120 MG, DAILY
  17. CYMBALTA [Concomitant]
     Dosage: 90 MG, DAILY
  18. LOPRESSOR [Concomitant]
     Indication: TACHYCARDIA
     Dosage: 25 MG, BID
  19. LOPRESSOR [Concomitant]
     Indication: TACHYCARDIA
     Dosage: 75 MG, BID
  20. OXYCODONE [Concomitant]
     Indication: DYSMENORRHOEA
     Dosage: 5 MG, PRN
  21. METFORMIN [Concomitant]
     Dosage: 500 MG, DAILY
  22. VERAPAMIL [Concomitant]
     Indication: TACHYCARDIA
     Dosage: 180 MG, DAILY
  23. OXYCONTIN [Concomitant]
     Dosage: 10 MG, UNK
  24. BENADRYL [Concomitant]
     Indication: CONTRAST MEDIA REACTION
     Dosage: UNK
     Dates: start: 20120309
  25. CIPROFLOXACIN [Concomitant]
     Indication: URINARY TRACT INFECTION
     Dosage: 500 MG, BID FOR 5 DAYS
  26. DIFLUCAN [Concomitant]
     Indication: PANNICULITIS
     Dosage: 100 MG, UNK
  27. TYLENOL [Concomitant]
  28. AMBIEN [Concomitant]
     Dosage: 10 MG, UNK
  29. CARAFATE [Concomitant]
  30. FAMOTIDINE [Concomitant]
  31. ACARBOSE [Concomitant]
  32. ALBUTEROL [Concomitant]
  33. LORAZEPAM [Concomitant]
  34. COVERA-HS [Concomitant]

REACTIONS (2)
  - Pulmonary embolism [None]
  - Thrombophlebitis superficial [None]
